FAERS Safety Report 8576591-6 (Version None)
Quarter: 2012Q3

REPORT INFORMATION
  Report Type: 
  Country: None (occurrence: None)
  Receive Date: 20120807
  Receipt Date: 20120730
  Transmission Date: 20120928
  Serious: Yes (Other)
  Sender: FDA-Public Use
  Company Number: US-JNJFOC-20120608847

PATIENT
  Sex: Female
  Weight: 63.5 kg

DRUGS (5)
  1. REMICADE [Suspect]
     Route: 042
  2. PREDNISONE [Concomitant]
     Indication: COLITIS
     Dosage: INDECREASING DOSE OF 5MG/WEEK/ORAL
     Route: 048
     Dates: start: 20120401, end: 20120608
  3. REMICADE [Suspect]
     Indication: COLITIS ULCERATIVE
     Route: 042
     Dates: start: 20120419
  4. PREVACID [Suspect]
     Route: 048
  5. PREVACID [Suspect]
     Indication: GASTRIC DISORDER
     Route: 048

REACTIONS (8)
  - ACNE PUSTULAR [None]
  - CHEST PAIN [None]
  - ARTHRALGIA [None]
  - JOINT SWELLING [None]
  - DIARRHOEA [None]
  - BLEPHARITIS [None]
  - GASTRITIS [None]
  - WEIGHT INCREASED [None]
